FAERS Safety Report 4706581-2 (Version None)
Quarter: 2005Q3

REPORT INFORMATION
  Report Type: 
  Country: None (occurrence: None)
  Receive Date: 20050705
  Receipt Date: 20050622
  Transmission Date: 20060218
  Serious: Yes (Hospitalization)
  Sender: FDA-Public Use
  Company Number: 2005AP03540

PATIENT
  Age: 73 Year
  Sex: Female

DRUGS (3)
  1. IRESSA [Suspect]
     Indication: LUNG CARCINOMA CELL TYPE UNSPECIFIED STAGE IV
     Route: 048
     Dates: start: 20040901
  2. RADIATION THERAPY [Concomitant]
     Dosage: GAMMA KNIFE RADIOSURGERY
  3. CHEMOTHERAPY [Concomitant]

REACTIONS (3)
  - EMPHYSEMA [None]
  - LUNG DISORDER [None]
  - PNEUMATOSIS INTESTINALIS [None]
